FAERS Safety Report 5467899-1 (Version None)
Quarter: 2007Q3

REPORT INFORMATION
  Report Type: 
  Country: None (occurrence: None)
  Receive Date: 20070926
  Receipt Date: 20070914
  Transmission Date: 20080115
  Serious: Yes (Other)
  Sender: FDA-Public Use
  Company Number: IT-JNJFOC-20070902939

PATIENT
  Age: 36 Year
  Sex: Male

DRUGS (4)
  1. RISPERDAL [Suspect]
     Indication: SCHIZOPHRENIA, PARANOID TYPE
     Route: 048
  2. DIAZEPAM [Concomitant]
     Route: 048
  3. LORMETAZEPAM [Concomitant]
     Route: 048
  4. BIPERIDEN HYDROCHLORIDE TAB [Concomitant]

REACTIONS (1)
  - RHABDOMYOLYSIS [None]
